FAERS Safety Report 5990125-1 (Version None)
Quarter: 2008Q4

REPORT INFORMATION
  Report Type: 
  Country: None (occurrence: None)
  Receive Date: 20081211
  Receipt Date: 20081202
  Transmission Date: 20090506
  Serious: Yes (Hospitalization)
  Sender: FDA-Public Use
  Company Number: FR-ELI_LILLY_AND_COMPANY-FR200806005794

PATIENT
  Sex: Male
  Weight: 70 kg

DRUGS (17)
  1. ENZASTAURIN (LY317615) [Suspect]
     Indication: DIFFUSE LARGE B-CELL LYMPHOMA
     Dosage: 600 MG, DAILY (1/D)
     Route: 048
     Dates: start: 20080320
  2. GEMCITABINE HCL [Suspect]
     Indication: DIFFUSE LARGE B-CELL LYMPHOMA
     Dosage: 1000 MG/M2, DAY 2 EVERY 2 WEEKS
     Route: 042
     Dates: start: 20080321
  3. RITUXIMAB [Suspect]
     Indication: DIFFUSE LARGE B-CELL LYMPHOMA
     Dosage: 375 MG/M2, DAY 1 EVERY 2 WEEKS
     Route: 042
     Dates: start: 20080320
  4. OXALIPLATIN [Suspect]
     Indication: DIFFUSE LARGE B-CELL LYMPHOMA
     Dosage: 100 MG/M2, ON DAY 2 EVERY 2 WEEKS
     Route: 042
     Dates: start: 20080321
  5. NEXIUM [Concomitant]
     Indication: PROPHYLAXIS
     Dosage: UNK, UNKNOWN
     Route: 065
     Dates: start: 20080505
  6. BACTRIM [Concomitant]
     Indication: PROPHYLAXIS
     Dosage: UNK, UNKNOWN
     Route: 065
     Dates: start: 20080321
  7. ZELITREX [Concomitant]
     Indication: PROPHYLAXIS
     Dosage: UNK, UNKNOWN
     Route: 065
     Dates: start: 20080321
  8. FORLAX [Concomitant]
     Indication: CONSTIPATION
     Dosage: UNK, UNKNOWN
     Route: 065
     Dates: start: 20080404
  9. INIPOMP [Concomitant]
     Indication: PROPHYLAXIS
     Dates: start: 20080319
  10. ACETAMINOPHEN [Concomitant]
     Indication: PAIN PROPHYLAXIS
     Dates: start: 20080320
  11. ZOPHREN [Concomitant]
     Indication: PROPHYLAXIS
     Dates: start: 20080320
  12. POLARAMINE /00043702/ [Concomitant]
     Indication: PREMEDICATION
     Dates: start: 20080320
  13. SOLU-MEDROL [Concomitant]
     Indication: PREMEDICATION
     Dates: start: 20080320
  14. GRANOCYTE [Concomitant]
     Indication: NEUTROPENIA
     Dates: start: 20080321
  15. TRIFLUCAN [Concomitant]
     Indication: NEUROPATHY PERIPHERAL
     Dates: start: 20080404
  16. FUNGIZONE [Concomitant]
     Indication: PROPHYLAXIS
     Dates: start: 20080404
  17. LEXOMIL [Concomitant]
     Indication: PROPHYLAXIS
     Dates: start: 20080618, end: 20080620

REACTIONS (1)
  - TOOTH ABSCESS [None]
